FAERS Safety Report 8588194-8 (Version None)
Quarter: 2012Q3

REPORT INFORMATION
  Report Type: 
  Country: None (occurrence: None)
  Receive Date: 20120731
  Receipt Date: 20120720
  Transmission Date: 20120928
  Serious: Yes (Life-Threatening, Other)
  Sender: FDA-Public Use
  Company Number: AUR-APL-2012-03063

PATIENT
  Age: 87 Year
  Sex: Male
  Weight: 84.81 kg

DRUGS (10)
  1. AMBIEN [Concomitant]
  2. SYNTHROID [Concomitant]
  3. COLCHICINE [Concomitant]
  4. SPIRONOLACTONE [Suspect]
     Indication: CARDIAC FAILURE CONGESTIVE
     Dosage: 12.5 MG (12.5 MG,1 IN 1 D),ORAL
     Route: 048
     Dates: start: 20090121
  5. TORSEMIDE [Suspect]
     Indication: CARDIAC FAILURE CONGESTIVE
     Dosage: 200 MG (100 MG,2 IN 1 D),ORAL
     Route: 048
     Dates: start: 20100825
  6. LIPITOR [Concomitant]
  7. ALLOPURINOL [Concomitant]
  8. TAFAMIDIS MEGLUMINE [Suspect]
     Indication: AMYLOIDOSIS
     Dosage: 20 MG (20 MG, 1 IN 1 D),ORAL
     Route: 048
     Dates: start: 20081205
  9. ZAROXOLYN [Suspect]
     Indication: CARDIAC FAILURE CONGESTIVE
     Dosage: AS NEEDED (2.5 MG),ORAL
     Route: 048
     Dates: start: 20100129
  10. COUMADIN [Concomitant]

REACTIONS (2)
  - CARDIAC FAILURE CONGESTIVE [None]
  - RENAL FAILURE [None]
